FAERS Safety Report 17407381 (Version 2)
Quarter: 2020Q1

REPORT INFORMATION
  Report Type: Spontaneous
  Country: AU (occurrence: AU)
  Receive Date: 20200212
  Receipt Date: 20200304
  Transmission Date: 20200409
  Serious: Yes (Death, Other)
  Sender: FDA-Public Use
  Company Number: AU-ABBVIE-20K-008-3270265-00

PATIENT

DRUGS (3)
  1. VENETOCLAX. [Suspect]
     Active Substance: VENETOCLAX
     Indication: PLASMA CELL MYELOMA
     Dosage: 1,2,4,8,11,12 OF 21 DAYS CYCLE
     Route: 048
  2. DEXAMETHASONE. [Suspect]
     Active Substance: DEXAMETHASONE
     Indication: PLASMA CELL MYELOMA
     Dosage: TOTAL 8 CYCLES?ON 1, 2, 8, 9, 15, 16, 22 AND 23 DAYS
     Route: 065
  3. BORTEZOMIB. [Suspect]
     Active Substance: BORTEZOMIB
     Indication: PLASMA CELL MYELOMA
     Dosage: ON 1,4,8 AND 11 OF 21 DAY
     Route: 065

REACTIONS (3)
  - Plasma cell myeloma [Fatal]
  - Infection [Fatal]
  - Death [Fatal]
